FAERS Safety Report 5797337-0 (Version None)
Quarter: 2008Q2

REPORT INFORMATION
  Report Type: 
  Country: None (occurrence: None)
  Receive Date: 20080627
  Receipt Date: 20080620
  Transmission Date: 20081010
  Serious: Yes (Other)
  Sender: FDA-Public Use
  Company Number: GXKR2008GB05728

PATIENT
  Age: 34 Year
  Sex: Female
  Weight: 63.9572 kg

DRUGS (6)
  1. TRIMETHOPRIM [Suspect]
     Indication: INFECTION
     Dosage: ORAL
     Route: 048
     Dates: start: 20060528, end: 20060531
  2. ACETYLSALICYLIC ACID SRT [Concomitant]
  3. LANTUS [Concomitant]
  4. NOVORAPID (INSULIN ASPART) [Concomitant]
  5. LEVOTHYROXINE SODIUM [Concomitant]
  6. VENLAFAXINE HCL [Concomitant]

REACTIONS (1)
  - HYPOGLYCAEMIA [None]
